FAERS Safety Report 8683102 (Version 2)
Quarter: 2012Q4

REPORT INFORMATION
  Report Type: 
  Country: US (occurrence: US)
  Receive Date: 20120725
  Receipt Date: 20120911
  Transmission Date: 20130627
  Serious: No
  Sender: FDA-Public Use
  Company Number: US-RB-042646-12

PATIENT
  Sex: Female

DRUGS (5)
  1. SUBOXONE FILM [Suspect]
     Indication: DRUG DEPENDENCE
     Dosage: sublingual film
     Route: 060
     Dates: start: 2011, end: 201206
  2. SUBOXONE FILM [Suspect]
     Dosage: sublingual film
     Route: 060
     Dates: start: 201206
  3. NORVASC [Concomitant]
     Indication: HYPERTENSION
     Dosage: Unknown dosage details
     Route: 065
  4. CLONIDINE [Concomitant]
     Indication: HYPERTENSION
     Dosage: Unknown dosage details
     Route: 065
  5. CLONIDINE [Concomitant]
     Indication: ANXIETY
     Dosage: Unknown dosage details
     Route: 065

REACTIONS (2)
  - Underdose [Recovered/Resolved]
  - Drug withdrawal syndrome [Recovered/Resolved]
